FAERS Safety Report 23292542 (Version 1)
Quarter: 2023Q4

REPORT INFORMATION
  Report Type: Spontaneous
  Country: NL (occurrence: NL)
  Receive Date: 20231213
  Receipt Date: 20231213
  Transmission Date: 20240109
  Serious: Yes (Hospitalization, Other)
  Sender: FDA-Public Use
  Company Number: None

PATIENT

DRUGS (2)
  1. VANCOMYCIN [Suspect]
     Active Substance: VANCOMYCIN
     Indication: Fracture infection
     Dosage: 2000 MILLIGRAM, QD
     Route: 065
     Dates: start: 20231030
  2. CEFUROXIME [Concomitant]
     Active Substance: CEFUROXIME
     Dosage: 1500 MILLIGRAM, QD
     Route: 065

REACTIONS (1)
  - Renal failure [Recovering/Resolving]
